FAERS Safety Report 4274600-6 (Version None)
Quarter: 2004Q1

REPORT INFORMATION
  Report Type: 
  Country: None (occurrence: None)
  Receive Date: 20040120
  Receipt Date: 20040120
  Transmission Date: 20041129
  Serious: Yes (Hospitalization)
  Sender: FDA-Public Use
  Company Number: None

PATIENT
  Age: 72 Year
  Sex: Female
  Weight: 49.4421 kg

DRUGS (5)
  1. REOPRO [Suspect]
     Indication: ANGIOPLASTY
     Dosage: INTRAVENOUS
     Route: 042
     Dates: start: 20040114, end: 20040114
  2. REOPRO [Suspect]
     Indication: STENT PLACEMENT
     Dosage: INTRAVENOUS
     Route: 042
     Dates: start: 20040114, end: 20040114
  3. ZOCOR [Concomitant]
  4. DILTIAZEM [Concomitant]
  5. CONTRAST MEDIA [Concomitant]

REACTIONS (1)
  - PLATELET COUNT DECREASED [None]
